FAERS Safety Report 24246311 (Version 2)
Quarter: 2025Q3

REPORT INFORMATION
  Report Type: Other
  Country: JP (occurrence: JP)
  Receive Date: 20240825
  Receipt Date: 20250721
  Transmission Date: 20251020
  Serious: Yes (Death, Other)
  Sender: DEXCEL LTD.
  Company Number: JP-DEXPHARM-2024-2902

PATIENT
  Age: 79 Year
  Sex: Male

DRUGS (2)
  1. LANSOPRAZOLE [Interacting]
     Active Substance: LANSOPRAZOLE
  2. CEFTRIAXONE [Interacting]
     Active Substance: CEFTRIAXONE
     Indication: Pneumonia

REACTIONS (4)
  - Hypokalaemia [Fatal]
  - Diarrhoea [Fatal]
  - Cardiac arrest [Fatal]
  - Drug interaction [Fatal]
